FAERS Safety Report 12125056 (Version 2)
Quarter: 2016Q2

REPORT INFORMATION
  Report Type: Report from Study
  Country: DE (occurrence: DE)
  Receive Date: 20160229
  Receipt Date: 20160503
  Transmission Date: 20160815
  Serious: Yes (Other)
  Sender: FDA-Public Use
  Company Number: DE-ROCHE-1716275

PATIENT
  Age: 73 Year
  Sex: Female

DRUGS (4)
  1. ARCOXIA [Concomitant]
     Active Substance: ETORICOXIB
  2. OMALIZUMAB [Suspect]
     Active Substance: OMALIZUMAB
     Indication: CHRONIC SPONTANEOUS URTICARIA
     Route: 058
     Dates: start: 20151111, end: 201601
  3. NOVAMINSULFON [Concomitant]
     Active Substance: METAMIZOLE
  4. EBASTEL [Concomitant]
     Active Substance: EBASTINE
     Route: 065
     Dates: start: 20150520

REACTIONS (5)
  - Musculoskeletal chest pain [Recovered/Resolved]
  - Abdominal pain upper [Recovered/Resolved]
  - Procedural dizziness [Recovered/Resolved]
  - Urticaria [Not Recovered/Not Resolved]
  - Headache [Not Recovered/Not Resolved]

NARRATIVE: CASE EVENT DATE: 201512
